FAERS Safety Report 24612871 (Version 1)
Quarter: 2024Q4

REPORT INFORMATION
  Report Type: Spontaneous
  Country: US (occurrence: None)
  Receive Date: 20241112
  Receipt Date: 20241112
  Transmission Date: 20250115
  Serious: Yes (Hospitalization)
  Sender: Public
  Company Number: None

PATIENT
  Age: 79 Year
  Sex: Female

DRUGS (3)
  1. LENALIDOMIDE [Suspect]
     Active Substance: LENALIDOMIDE
     Indication: Plasma cell myeloma
     Dosage: FREQUENCY : DAILY;?
     Route: 048
     Dates: start: 20241104, end: 20241106
  2. DEXAMETHASONE [Suspect]
     Active Substance: DEXAMETHASONE
  3. CARFILZOMIB [Suspect]
     Active Substance: CARFILZOMIB

REACTIONS (4)
  - Acute kidney injury [None]
  - Deep vein thrombosis [None]
  - Hypovolaemia [None]
  - Therapy interrupted [None]

NARRATIVE: CASE EVENT DATE: 20241106
